FAERS Safety Report 17570317 (Version 3)
Quarter: 2020Q2

REPORT INFORMATION
  Report Type: Report from Study
  Country: US (occurrence: US)
  Receive Date: 20200323
  Receipt Date: 20200417
  Transmission Date: 20200713
  Serious: Yes (Other)
  Sender: FDA-Public Use
  Company Number: US-EMD SERONO-9152469

PATIENT
  Age: 57 Year
  Sex: Male

DRUGS (2)
  1. MAVENCLAD [Suspect]
     Active Substance: CLADRIBINE
     Dosage: MONTH 2 THERAPY: 2 TABLETS (EACH OF 10 MG) ON D 1 TO 2 AND ONE TABLET (EACH OF 10 MG) ON DAYS 3 TO 5
     Route: 048
     Dates: start: 20200323, end: 20200327
  2. MAVENCLAD [Suspect]
     Active Substance: CLADRIBINE
     Indication: MULTIPLE SCLEROSIS
     Dosage: FIRST MONTH THERAPY.
     Route: 048
     Dates: start: 20200207

REACTIONS (1)
  - Urinary tract infection pseudomonal [Unknown]

NARRATIVE: CASE EVENT DATE: 20200312
